FAERS Safety Report 4997820-1 (Version None)
Quarter: 2006Q2

REPORT INFORMATION
  Report Type: 
  Country: None (occurrence: None)
  Receive Date: 20060510
  Receipt Date: 20060428
  Transmission Date: 20061013
  Serious: Yes (Other)
  Sender: FDA-Public Use
  Company Number: US-JNJFOC-20060500145

PATIENT
  Sex: Female
  Weight: 15.88 kg

DRUGS (6)
  1. CONCERTA [Suspect]
     Route: 048
  2. CONCERTA [Suspect]
     Indication: ATTENTION DEFICIT/HYPERACTIVITY DISORDER
     Route: 048
  3. ABILIFY [Concomitant]
  4. CLONIDINE [Concomitant]
  5. DEPAKOTE [Concomitant]
  6. SINGULAIR [Concomitant]

REACTIONS (3)
  - CHOREA [None]
  - CONVULSION [None]
  - DYSTONIA [None]
